FAERS Safety Report 14154853 (Version 1)
Quarter: 2017Q4

REPORT INFORMATION
  Report Type: Spontaneous
  Country: US (occurrence: US)
  Receive Date: 20171102
  Receipt Date: 20171102
  Transmission Date: 20180321
  Serious: Yes (Other)
  Sender: FDA-Public Use
  Company Number: US-BRISTOL-MYERS SQUIBB COMPANY-BMS-2017-097812

PATIENT
  Sex: Male

DRUGS (1)
  1. ELIQUIS [Suspect]
     Active Substance: APIXABAN
     Indication: PRODUCT USED FOR UNKNOWN INDICATION
     Route: 065

REACTIONS (10)
  - Haemorrhage [Unknown]
  - Erythema [Unknown]
  - Pain [Unknown]
  - Dizziness [Unknown]
  - Eating disorder [Unknown]
  - Insomnia [Unknown]
  - Abdominal pain upper [Unknown]
  - Blood pressure abnormal [Unknown]
  - Headache [Unknown]
  - Nausea [Unknown]
